FAERS Safety Report 19646432 (Version 1)
Quarter: 2021Q3

REPORT INFORMATION
  Report Type: Spontaneous
  Country: US (occurrence: US)
  Receive Date: 20210802
  Receipt Date: 20210802
  Transmission Date: 20211014
  Serious: Yes (Hospitalization)
  Sender: FDA-Public Use
  Company Number: None

PATIENT
  Age: 76 Year
  Sex: Female
  Weight: 46.8 kg

DRUGS (8)
  1. VITAMIN B12 1000MCG [Concomitant]
  2. AMLODIPINE [Concomitant]
     Active Substance: AMLODIPINE BESYLATE
  3. NICOTINE 14MG/24HR [Concomitant]
  4. IBRANCE [Suspect]
     Active Substance: PALBOCICLIB
     Indication: BREAST CANCER
     Dosage: ?          OTHER FREQUENCY:QD X 21/28 DAYS;?
     Route: 048
     Dates: start: 20210420
  5. LETROZOLE 2.5MG [Concomitant]
     Active Substance: LETROZOLE
  6. ELIQUIS [Concomitant]
     Active Substance: APIXABAN
  7. VITAMIN D 1000IU [Concomitant]
  8. METOPROLOL TARTRATE 50MG [Concomitant]
     Active Substance: METOPROLOL TARTRATE

REACTIONS (2)
  - Pulmonary oedema [None]
  - Gastric disorder [None]

NARRATIVE: CASE EVENT DATE: 20210802
